FAERS Safety Report 7373188-0 (Version None)
Quarter: 2011Q1

REPORT INFORMATION
  Report Type: 
  Country: None (occurrence: None)
  Receive Date: 20110324
  Receipt Date: 20110321
  Transmission Date: 20110831
  Serious: Yes (Hospitalization)
  Sender: FDA-Public Use
  Company Number: US-B.I. PHARMACEUTICALS,INC./RIDGEFIELD-2011-BP-08696BP

PATIENT
  Sex: Male

DRUGS (7)
  1. ATENOLOL [Concomitant]
     Indication: BLOOD PRESSURE
     Dosage: 25 MG
     Route: 048
  2. DIOVAN [Concomitant]
     Indication: BLOOD PRESSURE
     Dosage: 160 MG
     Route: 048
  3. SIMVASTATIN [Concomitant]
     Indication: BLOOD CHOLESTEROL
     Dosage: 80 MG
     Route: 048
  4. TRICOR [Concomitant]
     Indication: BLOOD CHOLESTEROL
     Dosage: 48 MG
     Route: 048
  5. PRADAXA [Suspect]
     Indication: ATRIAL FIBRILLATION
     Dosage: 300 MG
     Route: 048
     Dates: start: 20110110
  6. PRADAXA [Suspect]
     Dosage: 300 MG
     Route: 048
     Dates: start: 20110125
  7. ASPIRIN [Concomitant]
     Indication: PROPHYLAXIS
     Dosage: 162 MG
     Route: 048

REACTIONS (8)
  - VISUAL ACUITY REDUCED [None]
  - SPEECH DISORDER [None]
  - AMNESIA [None]
  - DIZZINESS [None]
  - BALANCE DISORDER [None]
  - DIARRHOEA [None]
  - ATTENTION-SEEKING BEHAVIOUR [None]
  - CEREBROVASCULAR ACCIDENT [None]
